FAERS Safety Report 18084567 (Version 1)
Quarter: 2020Q3

REPORT INFORMATION
  Report Type: Report from Study
  Country: IT (occurrence: IT)
  Receive Date: 20200728
  Receipt Date: 20200728
  Transmission Date: 20201103
  Serious: Yes (Other)
  Sender: FDA-Public Use
  Company Number: NVSC2020IT208283

PATIENT
  Age: 69 Year
  Sex: Male

DRUGS (2)
  1. PAZOPANIB [Suspect]
     Active Substance: PAZOPANIB
     Indication: RENAL CANCER METASTATIC
     Dosage: 800 MG, QD (DAILY)
     Route: 065
     Dates: start: 201306, end: 201309
  2. PAZOPANIB [Suspect]
     Active Substance: PAZOPANIB
     Dosage: 600 MG, QD (DAILY)
     Route: 065
     Dates: start: 201309, end: 201701

REACTIONS (10)
  - Renal mass [Unknown]
  - Metastases to adrenals [Unknown]
  - Hypertension [Unknown]
  - Proteinuria [Unknown]
  - Clear cell renal cell carcinoma [Unknown]
  - Asthenia [Unknown]
  - Renal failure [Unknown]
  - Metastases to lung [Unknown]
  - Skin discolouration [Unknown]
  - Diarrhoea [Unknown]

NARRATIVE: CASE EVENT DATE: 201306
